FAERS Safety Report 12704323 (Version 2)
Quarter: 2016Q4

REPORT INFORMATION
  Report Type: Spontaneous
  Country: US (occurrence: US)
  Receive Date: 20160831
  Receipt Date: 20161116
  Transmission Date: 20170207
  Serious: Yes (Other)
  Sender: FDA-Public Use
  Company Number: US-SMITH AND NEPHEW, INC-2016SMT00706

PATIENT
  Age: 56 Year
  Sex: Female

DRUGS (1)
  1. REGRANEX [Suspect]
     Active Substance: BECAPLERMIN
     Indication: WOUND
     Dosage: UNK
     Dates: end: 20160816

REACTIONS (3)
  - Cellulitis [Recovered/Resolved]
  - Osteomyelitis [Recovered/Resolved]
  - Muscle atrophy [Recovered/Resolved]

NARRATIVE: CASE EVENT DATE: 20160708
